FAERS Safety Report 23087738 (Version 2)
Quarter: 2023Q4

REPORT INFORMATION
  Report Type: Spontaneous
  Country: JP (occurrence: JP)
  Receive Date: 20231020
  Receipt Date: 20231115
  Transmission Date: 20240110
  Serious: Yes (Other)
  Sender: FDA-Public Use
  Company Number: JP-BAYER-2023A142814

PATIENT
  Age: 76 Year
  Sex: Male

DRUGS (3)
  1. EYLEA [Suspect]
     Active Substance: AFLIBERCEPT
     Indication: Choroidal neovascularisation
     Dosage: 2 MG, ONCE (LEFT EYE), SOLUTION FOR INJECTION, 40MG/ML
     Route: 031
     Dates: start: 20210816, end: 20210816
  2. EYLEA [Suspect]
     Active Substance: AFLIBERCEPT
     Dosage: 2 MG, ONCE (LEFT EYE), SOLUTION FOR INJECTION, 40MG/ML
     Route: 031
     Dates: start: 202110, end: 202110
  3. EYLEA [Suspect]
     Active Substance: AFLIBERCEPT
     Dosage: 2 MG, ONCE (LEFT EYE), SOLUTION FOR INJECTION, 40MG/ML
     Route: 031
     Dates: start: 202209, end: 202209

REACTIONS (2)
  - Macular hole [Recovered/Resolved]
  - Retinal detachment [Recovered/Resolved]

NARRATIVE: CASE EVENT DATE: 20221021
